FAERS Safety Report 15936111 (Version 2)
Quarter: 2019Q1

REPORT INFORMATION
  Report Type: Spontaneous
  Country: IR (occurrence: IR)
  Receive Date: 20190208
  Receipt Date: 20190221
  Transmission Date: 20190417
  Serious: Yes (Other)
  Sender: FDA-Public Use
  Company Number: IR-SUN PHARMACEUTICAL INDUSTRIES LTD-2019RR-198561

PATIENT
  Age: 21 Year
  Sex: Female

DRUGS (6)
  1. LITHIUM CARBONATE. [Suspect]
     Active Substance: LITHIUM CARBONATE
     Indication: PRODUCT USED FOR UNKNOWN INDICATION
     Dosage: UP TO 1200 MG/DAY WITH 1 MG/DL OF SERUM LEVEL
     Route: 065
  2. TRANQUOPINE [QUETIAPINE] [Suspect]
     Active Substance: QUETIAPINE
     Indication: PRODUCT USED FOR UNKNOWN INDICATION
     Dosage: UP TO 600 MG/DAY
     Route: 065
  3. SUCCYNIL CHOLINE [Concomitant]
     Indication: ANAESTHESIA
     Dosage: 25 MILLIGRAM
     Route: 042
  4. ATROPINE. [Concomitant]
     Active Substance: ATROPINE
     Indication: ANAESTHESIA
     Dosage: 0.5 MILLIGRAM
     Route: 042
  5. BIPERIDEN [Suspect]
     Active Substance: BIPERIDEN
     Indication: PRODUCT USED FOR UNKNOWN INDICATION
     Dosage: UP TO 4 MG/DAY
     Route: 065
  6. THIOPENTAL SODIUM. [Concomitant]
     Active Substance: THIOPENTAL SODIUM
     Indication: ANAESTHESIA
     Dosage: 150 MILLIGRAM
     Route: 042

REACTIONS (5)
  - Catatonia [Recovered/Resolved]
  - Irritability [Unknown]
  - Pressure of speech [Unknown]
  - Therapy non-responder [Unknown]
  - Patient uncooperative [Unknown]
